FAERS Safety Report 15594051 (Version 1)
Quarter: 2018Q4

REPORT INFORMATION
  Report Type: Spontaneous
  Country: JP (occurrence: JP)
  Receive Date: 20181107
  Receipt Date: 20181107
  Transmission Date: 20190205
  Serious: Yes (Death)
  Sender: FDA-Public Use
  Company Number: JP-BAYER-2018-204276

PATIENT
  Age: 74 Year
  Sex: Male

DRUGS (2)
  1. XOFIGO [Suspect]
     Active Substance: RADIUM RA-223 DICHLORIDE
     Indication: METASTASES TO BONE
  2. XOFIGO [Suspect]
     Active Substance: RADIUM RA-223 DICHLORIDE
     Indication: HORMONE-REFRACTORY PROSTATE CANCER
     Dosage: TOTAL ADMINISTRATION 3 TIMES
     Route: 042
     Dates: start: 20160826, end: 20161028

REACTIONS (2)
  - Cachexia [Fatal]
  - Hormone-refractory prostate cancer [Fatal]

NARRATIVE: CASE EVENT DATE: 20161128
